FAERS Safety Report 17318454 (Version 2)
Quarter: 2020Q1

REPORT INFORMATION
  Report Type: Spontaneous
  Country: JP (occurrence: JP)
  Receive Date: 20200124
  Receipt Date: 20200317
  Transmission Date: 20200409
  Serious: Yes (Death, Other)
  Sender: FDA-Public Use
  Company Number: JP-BAYER-2020-011691

PATIENT
  Age: 66 Year
  Sex: Male
  Weight: 54.5 kg

DRUGS (7)
  1. LOXOPROFEN [Concomitant]
     Active Substance: LOXOPROFEN
     Dosage: UNK
     Route: 048
     Dates: start: 20150908
  2. STIVARGA [Suspect]
     Active Substance: REGORAFENIB
     Indication: COLORECTAL CANCER RECURRENT
     Dosage: 160MG/DAY, 3 WEEKS ON, 1 WEEK OFF
     Route: 048
     Dates: start: 20150825, end: 20150928
  3. STIVARGA [Suspect]
     Active Substance: REGORAFENIB
     Indication: COLORECTAL CANCER RECURRENT
     Dosage: 80MG/DAY, 3 WEEKS ON, 1 WEEK OFF
     Route: 048
     Dates: start: 20151020, end: 20160209
  4. STIVARGA [Suspect]
     Active Substance: REGORAFENIB
     Indication: COLORECTAL CANCER RECURRENT
     Dosage: 120MG/DAY, 3 WEEKS ON, 1 WEEK OFF
     Route: 048
     Dates: start: 20150929, end: 20151019
  5. DAIKENCHUTO [Concomitant]
     Active Substance: HERBALS
     Dosage: DAILY DOSE 2.5 G
     Route: 048
  6. VEGIN [Concomitant]
     Indication: DRUG TOXICITY PROPHYLAXIS
     Dosage: UNK
     Route: 061
     Dates: start: 20150825
  7. MYSER [DIFLUPREDNATE] [Concomitant]
     Indication: DRUG TOXICITY PROPHYLAXIS
     Dosage: UNK
     Route: 061
     Dates: start: 20150825

REACTIONS (7)
  - Alanine aminotransferase increased [Recovering/Resolving]
  - Colorectal cancer recurrent [Fatal]
  - Palmar-plantar erythrodysaesthesia syndrome [Recovering/Resolving]
  - Hypertension [Unknown]
  - Aspartate aminotransferase increased [Recovering/Resolving]
  - Blood bilirubin increased [None]
  - Peripheral sensory neuropathy [None]

NARRATIVE: CASE EVENT DATE: 20150825
